FAERS Safety Report 13122874 (Version 1)
Quarter: 2017Q1

REPORT INFORMATION
  Report Type: Report from Study
  Country: BR (occurrence: BR)
  Receive Date: 20170117
  Receipt Date: 20170117
  Transmission Date: 20170428
  Serious: Yes (Hospitalization, Other)
  Sender: FDA-Public Use
  Company Number: PHHY2016BR089974

PATIENT
  Sex: Female
  Weight: 48 kg

DRUGS (2)
  1. EXJADE [Suspect]
     Active Substance: DEFERASIROX
     Indication: SICKLE CELL ANAEMIA
     Dosage: 2 DF (1000 MG)
     Route: 065
  2. FOLIC ACID. [Concomitant]
     Active Substance: FOLIC ACID
     Indication: PRODUCT USED FOR UNKNOWN INDICATION
     Route: 005

REACTIONS (17)
  - Abasia [Unknown]
  - Asthenia [Unknown]
  - Anorectal disorder [Unknown]
  - Abdominal distension [Unknown]
  - Cerebrovascular accident [Unknown]
  - Dizziness [Unknown]
  - Faeces discoloured [Unknown]
  - Blood iron increased [Unknown]
  - Dysphonia [Unknown]
  - Hepatic pain [Unknown]
  - Abdominal pain upper [Unknown]
  - Alopecia [Unknown]
  - Nausea [Unknown]
  - Hair disorder [Unknown]
  - Non-cardiac chest pain [Unknown]
  - Malaise [Unknown]
  - Wrong technique in product usage process [Unknown]
